FAERS Safety Report 18707315 (Version 2)
Quarter: 2021Q1

REPORT INFORMATION
  Report Type: Spontaneous
  Country: US (occurrence: US)
  Receive Date: 20210106
  Receipt Date: 20210126
  Transmission Date: 20210419
  Serious: Yes (Other)
  Sender: FDA-Public Use
  Company Number: US-TEVA-2020-US-1865171

PATIENT
  Age: 66 Year
  Sex: Female

DRUGS (7)
  1. ETOPOSIDE. [Suspect]
     Active Substance: ETOPOSIDE
     Indication: CYTOKINE STORM
     Dosage: 50MG/M2 ONCE IN A WEEK, SECOND DOSE WAS GIVEN AFTER 7 DAYS
     Route: 042
  2. ANAKINRA [Concomitant]
     Active Substance: ANAKINRA
     Indication: CYTOKINE STORM
     Dosage: FOR 7 DAYS
     Route: 065
  3. TRIMETHOPRIM?SULFAMETHOXAZOLE [Concomitant]
     Active Substance: SULFAMETHOXAZOLE\TRIMETHOPRIM
     Indication: INFECTION PROPHYLAXIS
     Route: 065
  4. IMMUNOGLOBULIN [Concomitant]
     Indication: CYTOKINE STORM
     Dosage: FOR 3 DAYS
     Route: 042
  5. SARILUMAB [Concomitant]
     Active Substance: SARILUMAB
     Indication: CYTOKINE STORM
     Route: 065
  6. ACYCLOVIR. [Concomitant]
     Active Substance: ACYCLOVIR
     Indication: INFECTION PROPHYLAXIS
     Route: 065
  7. DEXAMETHASONE. [Concomitant]
     Active Substance: DEXAMETHASONE
     Indication: CYTOKINE STORM
     Route: 065

REACTIONS (2)
  - Transaminases increased [Recovered/Resolved]
  - Off label use [Unknown]
